FAERS Safety Report 12067162 (Version 1)
Quarter: 2016Q1

REPORT INFORMATION
  Report Type: Spontaneous
  Country: US (occurrence: US)
  Receive Date: 20160210
  Receipt Date: 20160210
  Transmission Date: 20160526
  Serious: Yes (Hospitalization)
  Sender: FDA-Public Use
  Company Number: US-JNJFOC-20160108947

PATIENT
  Sex: Female

DRUGS (1)
  1. DARZALEX [Suspect]
     Active Substance: DARATUMUMAB
     Indication: PLASMA CELL MYELOMA
     Route: 042
     Dates: start: 20160111

REACTIONS (6)
  - Heart rate abnormal [Recovering/Resolving]
  - Hypertension [Recovering/Resolving]
  - Infusion related reaction [Unknown]
  - Wheezing [Unknown]
  - Heart rate decreased [Unknown]
  - Throat tightness [Unknown]

NARRATIVE: CASE EVENT DATE: 20150111
